FAERS Safety Report 5597064-9 (Version None)
Quarter: 2008Q1

REPORT INFORMATION
  Report Type: 
  Country: None (occurrence: None)
  Receive Date: 20080121
  Receipt Date: 20080111
  Transmission Date: 20080703
  Serious: Yes (Hospitalization)
  Sender: FDA-Public Use
  Company Number: CA-WYE-H01585707

PATIENT
  Age: 47 Year
  Sex: Male
  Weight: 89.2 kg

DRUGS (8)
  1. GEMTUZUMAB OZOGAMICIN [Suspect]
     Indication: ACUTE MYELOID LEUKAEMIA
     Dosage: 12 MG TOTAL DOSE ADMINISTERED
     Route: 042
     Dates: start: 20071109, end: 20071109
  2. DAUNORUBICIN HCL [Concomitant]
     Indication: ACUTE MYELOID LEUKAEMIA
     Dosage: 270 MG TOTAL DOSE ADMINISTERED
     Dates: start: 20071106, end: 20071108
  3. TAZOCIN [Suspect]
     Indication: PYREXIA
  4. CEFTAZIDIME [Suspect]
     Indication: PYREXIA
  5. FLUCONAZOLE [Suspect]
  6. VANCOMYCIN [Suspect]
  7. CYTARABINE [Concomitant]
     Indication: ACUTE MYELOID LEUKAEMIA
     Dosage: 1400 MG TOTAL DOSE ADMINISTERED
     Dates: start: 20071106, end: 20071112
  8. ALLOPURINOL [Suspect]

REACTIONS (4)
  - GUILLAIN-BARRE SYNDROME [None]
  - RASH GENERALISED [None]
  - RASH MACULO-PAPULAR [None]
  - RASH PRURITIC [None]
